FAERS Safety Report 15993717 (Version 1)
Quarter: 2019Q1

REPORT INFORMATION
  Report Type: Spontaneous
  Country: IT (occurrence: IT)
  Receive Date: 20190222
  Receipt Date: 20190222
  Transmission Date: 20190418
  Serious: Yes (Hospitalization)
  Sender: FDA-Public Use
  Company Number: IT-SA-2019SA044751

PATIENT
  Age: 75 Year
  Sex: Male

DRUGS (7)
  1. FUROSEMIDE. [Concomitant]
     Active Substance: FUROSEMIDE
     Dosage: 50 MG
     Route: 048
  2. CONGESCOR [Concomitant]
     Active Substance: BISOPROLOL
     Dosage: 5 MG
     Route: 048
  3. CLEXANE T [Suspect]
     Active Substance: ENOXAPARIN SODIUM
     Dosage: 8000 IU, QD
     Route: 058
     Dates: start: 20180323, end: 20180717
  4. LUVION [CANRENONE] [Concomitant]
     Dosage: 25 MG
     Route: 048
  5. ISOPTIN [VERAPAMIL] [Concomitant]
     Dosage: 360 MG
     Route: 048
  6. CLEXANE T [Suspect]
     Active Substance: ENOXAPARIN SODIUM
     Dosage: 6000 IU, QD
     Route: 058
     Dates: start: 20180323, end: 20180717
  7. DELTACORTENE [Concomitant]
     Active Substance: PREDNISONE
     Dosage: 5 MG
     Route: 048

REACTIONS (1)
  - Haemoptysis [Recovered/Resolved]

NARRATIVE: CASE EVENT DATE: 20180717
